FAERS Safety Report 5310978-X (Version None)
Quarter: 2007Q2

REPORT INFORMATION
  Report Type: 
  Country: None (occurrence: None)
  Receive Date: 20070430
  Receipt Date: 20070418
  Transmission Date: 20071010
  Serious: Yes (Hospitalization)
  Sender: FDA-Public Use
  Company Number: US-JNJFOC-20070404228

PATIENT
  Sex: Female
  Weight: 119.75 kg

DRUGS (18)
  1. DURAGESIC-100 [Suspect]
     Indication: DRUG USE FOR UNKNOWN INDICATION
     Route: 062
  2. LORTAB [Suspect]
     Indication: DRUG USE FOR UNKNOWN INDICATION
     Dosage: 10/500
     Route: 065
  3. MORPHINE [Suspect]
     Indication: DRUG USE FOR UNKNOWN INDICATION
     Route: 030
  4. FENTANYL CITRATE [Suspect]
     Indication: BREAKTHROUGH PAIN
     Route: 002
  5. ZOLPIDEM TARTRATE [Concomitant]
     Route: 065
  6. TIAGABINE HCL [Concomitant]
     Route: 065
  7. LEVOTHYROXINE SODIUM [Concomitant]
     Route: 065
  8. MONTELUKAST SODIUM [Concomitant]
     Route: 065
  9. TRIAMCINOLONE ACETONIDE [Concomitant]
     Route: 065
  10. XYLOCAINE [Concomitant]
     Route: 065
  11. XYREM [Concomitant]
     Route: 065
  12. PHENERGAN HCL [Concomitant]
     Route: 065
  13. VERAPAMIL [Concomitant]
     Route: 065
  14. TOPAMAX [Concomitant]
     Route: 065
  15. CLONIDINE [Concomitant]
     Route: 065
  16. VITAMIN D [Concomitant]
     Route: 065
  17. CARISOPRODOL [Concomitant]
     Route: 065
  18. AMITIZA [Concomitant]
     Route: 065

REACTIONS (1)
  - GASTROINTESTINAL MOTILITY DISORDER [None]
